FAERS Safety Report 8884200 (Version 2)
Quarter: 2013Q1

REPORT INFORMATION
  Report Type: Spontaneous
  Country: ES (occurrence: ES)
  Receive Date: 20121104
  Receipt Date: 20130131
  Transmission Date: 20140127
  Serious: Yes (Other)
  Sender: FDA-Public Use
  Company Number: ES-BAYER-2012-112183

PATIENT
  Age: 66 Year
  Sex: Male

DRUGS (5)
  1. ADIRO 100 [Suspect]
     Indication: LERICHE SYNDROME
     Dosage: 100 MG, QD
     Route: 048
     Dates: start: 2009, end: 20120225
  2. HEPARIN SODIUM [Interacting]
     Indication: PERIPHERAL ARTERIAL OCCLUSIVE DISEASE
     Route: 042
     Dates: start: 20120225, end: 20120225
  3. HEPARIN [Interacting]
     Indication: LERICHE SYNDROME
     Route: 058
     Dates: start: 20111105, end: 20120225
  4. SINTROM [Interacting]
     Indication: LERICHE SYNDROME
     Route: 048
     Dates: start: 20111105, end: 20120225
  5. IBUPROFEN [Interacting]
     Indication: PAIN
     Route: 048
     Dates: start: 2009, end: 20120225

REACTIONS (2)
  - Coagulopathy [Recovered/Resolved]
  - Anaemia [Recovered/Resolved]
